FAERS Safety Report 23983684 (Version 1)
Quarter: 2024Q2

REPORT INFORMATION
  Report Type: Spontaneous
  Country: IN (occurrence: IN)
  Receive Date: 20240618
  Receipt Date: 20240618
  Transmission Date: 20240715
  Serious: Yes (Hospitalization)
  Sender: FDA-Public Use
  Company Number: IN-STRIDES ARCOLAB LIMITED-2024SP006900

PATIENT
  Age: 16 Year
  Sex: Male

DRUGS (2)
  1. ALPRAZOLAM [Suspect]
     Active Substance: ALPRAZOLAM
     Indication: Product used for unknown indication
     Dosage: UNK (10 ALPRAZOLAM 0.5MG TABLETS)
     Route: 065
  2. MELATONIN [Suspect]
     Active Substance: MELATONIN
     Indication: Suicide attempt
     Dosage: 900 MILLIGRAM (180 MELATONIN 5MG TABLETS)
     Route: 065

REACTIONS (7)
  - White blood cell count increased [Recovered/Resolved]
  - Suicide attempt [Unknown]
  - Intentional product misuse [Unknown]
  - Vomiting [Recovered/Resolved]
  - Somnolence [Recovered/Resolved]
  - Toxicity to various agents [Recovered/Resolved]
  - Intentional overdose [Unknown]
